FAERS Safety Report 25744746 (Version 1)
Quarter: 2025Q3

REPORT INFORMATION
  Report Type: Report from Study
  Country: CA (occurrence: CA)
  Receive Date: 20250901
  Receipt Date: 20250901
  Transmission Date: 20251020
  Serious: Yes (Other)
  Sender: CELLTRION
  Company Number: CA-CELLTRION INC.-2025CA026745

PATIENT

DRUGS (3)
  1. INFLIXIMAB-DYYB [Suspect]
     Active Substance: INFLIXIMAB-DYYB
     Indication: Colitis ulcerative
     Route: 042
     Dates: start: 20250708, end: 2025
  2. INFLIXIMAB-DYYB [Suspect]
     Active Substance: INFLIXIMAB-DYYB
     Dates: start: 20250722
  3. INFLIXIMAB-DYYB [Suspect]
     Active Substance: INFLIXIMAB-DYYB

REACTIONS (10)
  - Colitis ulcerative [Unknown]
  - Joint stiffness [Unknown]
  - Inflammation [Unknown]
  - Pain [Unknown]
  - Pain in extremity [Unknown]
  - Malaise [Unknown]
  - Bone pain [Unknown]
  - Overdose [Unknown]
  - Therapy cessation [Unknown]
  - Treatment delayed [Unknown]
